FAERS Safety Report 8314681-3 (Version None)
Quarter: 2012Q2

REPORT INFORMATION
  Report Type: 
  Country: None (occurrence: None)
  Receive Date: 20120426
  Receipt Date: 20120419
  Transmission Date: 20120825
  Serious: Yes (Hospitalization, Disabling, Other)
  Sender: FDA-Public Use
  Company Number: FR-ELI_LILLY_AND_COMPANY-FR200801003818

PATIENT
  Age: 47 Year
  Sex: Female
  Weight: 57 kg

DRUGS (6)
  1. AMITRIPTYLINE HCL [Concomitant]
     Indication: DEPRESSION
     Dosage: 25 MG, DAILY (1/D)
     Route: 048
     Dates: start: 20071029, end: 20071206
  2. CYMBALTA [Suspect]
     Indication: DEPRESSION
     Dosage: 60 MG, DAILY (1/D)
     Route: 048
     Dates: start: 20071209, end: 20071209
  3. OXAZEPAM [Concomitant]
     Indication: ANXIETY
     Dosage: 10 MG, DAILY (1/D)
     Route: 048
     Dates: start: 20071029, end: 20071206
  4. STRESAM [Concomitant]
     Indication: ANXIETY
     Dosage: 3 D/F, DAILY (1/D)
     Route: 048
     Dates: start: 20071206, end: 20071210
  5. OESTROGEST [Concomitant]
     Route: 048
  6. HAVLANE [Concomitant]
     Dates: start: 20071206

REACTIONS (39)
  - PAIN IN EXTREMITY [None]
  - DYSKINESIA [None]
  - HEADACHE [None]
  - VESTIBULAR DISORDER [None]
  - VERTIGO [None]
  - EPILEPSY [None]
  - AMNESIA [None]
  - POLLAKIURIA [None]
  - MUSCLE CONTRACTURE [None]
  - FOOD AVERSION [None]
  - PRESBYOPIA [None]
  - TREMOR [None]
  - EAR PAIN [None]
  - AEROPHAGIA [None]
  - VISION BLURRED [None]
  - FALL [None]
  - APHASIA [None]
  - ABDOMINAL PAIN UPPER [None]
  - BALANCE DISORDER [None]
  - APTYALISM [None]
  - JOINT DISLOCATION [None]
  - DIZZINESS [None]
  - URINARY INCONTINENCE [None]
  - DECREASED APPETITE [None]
  - PAROSMIA [None]
  - NAUSEA [None]
  - BRUXISM [None]
  - TOOTHACHE [None]
  - HYPERMETROPIA [None]
  - DYSPHAGIA [None]
  - MUSCULOSKELETAL STIFFNESS [None]
  - TINNITUS [None]
  - EYE PAIN [None]
  - ARTHRALGIA [None]
  - VIITH NERVE PARALYSIS [None]
  - HAEMORRHAGE [None]
  - SWEAT GLAND DISORDER [None]
  - HYPERSENSITIVITY [None]
  - DYSPHEMIA [None]
